FAERS Safety Report 5270540-4 (Version None)
Quarter: 2007Q1

REPORT INFORMATION
  Report Type: 
  Country: None (occurrence: None)
  Receive Date: 20070315
  Receipt Date: 20070228
  Transmission Date: 20070707
  Serious: Yes (Hospitalization)
  Sender: FDA-Public Use
  Company Number: 2007SP000710

PATIENT
  Age: 74 Year
  Sex: Female
  Weight: 73.4827 kg

DRUGS (14)
  1. XOPENEX [Suspect]
     Indication: CHRONIC OBSTRUCTIVE PULMONARY DISEASE
     Dosage: PRN; INHALATION
     Route: 055
  2. CALCIUM [Concomitant]
  3. ACETYLSALICYLIC ACID SRT [Concomitant]
  4. PRILOSEC [Concomitant]
  5. TYLENOL [Concomitant]
  6. FORMOTEROL FUMARATE [Concomitant]
  7. ALBUTEROL [Concomitant]
  8. ATACAND [Concomitant]
  9. HYDROCHLOROTHIAZIDE [Concomitant]
  10. PNEUMOVAX 23 [Concomitant]
  11. INFLUENZA VACCINE [Concomitant]
  12. MOBIC [Concomitant]
  13. ULTRAM [Concomitant]
  14. ATROVENT [Concomitant]

REACTIONS (1)
  - PNEUMONIA [None]
